FAERS Safety Report 7560171-5 (Version None)
Quarter: 2011Q2

REPORT INFORMATION
  Report Type: 
  Country: None (occurrence: None)
  Receive Date: 20110621
  Receipt Date: 20110613
  Transmission Date: 20111010
  Serious: Yes (Congenital Anomaly)
  Sender: FDA-Public Use
  Company Number: A0926480A

PATIENT
  Sex: Female
  Weight: 3.1 kg

DRUGS (6)
  1. KALETRA [Suspect]
     Dosage: 6TAB PER DAY
     Route: 064
     Dates: end: 20110317
  2. RETROVIR [Concomitant]
     Dosage: 1MGKM PER DAY
     Route: 064
     Dates: start: 20110317, end: 20110317
  3. MARIJUANA [Concomitant]
  4. COMBIVIR [Suspect]
     Indication: ANTIVIRAL TREATMENT
     Dosage: 2TAB PER DAY
     Route: 064
  5. RETROVIR [Concomitant]
     Indication: ANTIVIRAL TREATMENT
     Dosage: 2MGKH PER DAY
     Route: 064
     Dates: start: 20110317, end: 20110317
  6. KALETRA [Suspect]
     Indication: ANTIVIRAL TREATMENT
     Dosage: 4TAB PER DAY
     Route: 064
     Dates: end: 20110228

REACTIONS (5)
  - HEART DISEASE CONGENITAL [None]
  - TRISOMY 21 [None]
  - ILL-DEFINED DISORDER [None]
  - LIVE BIRTH [None]
  - DRUG EXPOSURE DURING PREGNANCY [None]
